FAERS Safety Report 6375632-4 (Version None)
Quarter: 2009Q3

REPORT INFORMATION
  Report Type: 
  Country: None (occurrence: None)
  Receive Date: 20090924
  Receipt Date: 20090915
  Transmission Date: 20100115
  Serious: Yes (Other)
  Sender: FDA-Public Use
  Company Number: IL-AMGEN-US365174

PATIENT
  Age: 20 Year
  Sex: Male

DRUGS (2)
  1. ENBREL [Suspect]
     Indication: PSORIASIS
     Route: 058
     Dates: start: 20090518
  2. ENBREL [Suspect]
     Route: 058
     Dates: start: 20090101

REACTIONS (1)
  - DEPRESSION SUICIDAL [None]
